FAERS Safety Report 22310114 (Version 2)
Quarter: 2024Q3

REPORT INFORMATION
  Report Type: Spontaneous
  Country: FR (occurrence: FR)
  Receive Date: 20230511
  Receipt Date: 20240823
  Transmission Date: 20241017
  Serious: Yes (Hospitalization)
  Sender: TEVA
  Company Number: None

PATIENT
  Age: 71 Year
  Sex: Female

DRUGS (10)
  1. AMOXICILLIN [Suspect]
     Active Substance: AMOXICILLIN
     Indication: Tracheitis
     Route: 065
     Dates: start: 20221010, end: 20221017
  2. ACETYLCYSTEINE [Suspect]
     Active Substance: ACETYLCYSTEINE
     Indication: Tracheitis
     Route: 065
     Dates: start: 20221010, end: 20221017
  3. FLUVASTATIN [Concomitant]
     Active Substance: FLUVASTATIN SODIUM
     Indication: Product used for unknown indication
     Dosage: FLUVASTATINE BASE
     Route: 065
  4. GELSEMIUM SEMPERVIRENS ROOT [Concomitant]
     Active Substance: GELSEMIUM SEMPERVIRENS ROOT
     Indication: Product used for unknown indication
     Dosage: GELSEMIUM SEMPERVIRENS (HOMEOPATHY)
     Route: 065
  5. BETAMETHASONE [Suspect]
     Active Substance: BETAMETHASONE\BETAMETHASONE DIPROPIONATE
     Indication: Tracheitis
     Route: 065
     Dates: start: 20221010, end: 20221017
  6. CODEINE PHOSPHATE [Suspect]
     Active Substance: CODEINE PHOSPHATE
     Indication: Tracheitis
     Route: 065
     Dates: start: 20221018, end: 20221018
  7. ESOMEPRAZOLE [Concomitant]
     Active Substance: ESOMEPRAZOLE
     Indication: Product used for unknown indication
     Route: 065
  8. PRISTINAMYCIN [Suspect]
     Active Substance: PRISTINAMYCIN
     Indication: Tracheitis
     Route: 048
     Dates: start: 20221018, end: 20221018
  9. LEVOCETIRIZINE DIHYDROCHLORIDE [Concomitant]
     Active Substance: LEVOCETIRIZINE DIHYDROCHLORIDE
     Indication: Product used for unknown indication
     Route: 065
  10. ACETYLLEUCINE [Concomitant]
     Active Substance: ACETYLLEUCINE
     Indication: Product used for unknown indication
     Route: 065

REACTIONS (3)
  - Rash [Recovered/Resolved]
  - Hepatitis [Recovered/Resolved]
  - Pancreatitis [Recovered/Resolved]

NARRATIVE: CASE EVENT DATE: 20221018
